FAERS Safety Report 9647985 (Version 1)
Quarter: 2013Q4

REPORT INFORMATION
  Report Type: Spontaneous
  Country: US (occurrence: None)
  Receive Date: 20131024
  Receipt Date: 20131024
  Transmission Date: 20140711
  Serious: No
  Sender: FDA-Public Use
  Company Number: None

PATIENT
  Age: 72 Year
  Sex: Female

DRUGS (5)
  1. FOSINOPRIL SODIUM [Suspect]
     Indication: BLOOD PRESSURE INCREASED
     Dosage: 20 MG, 1 TABLET, DAILY, WATER + MOUTH
     Route: 048
     Dates: start: 20130726, end: 20130815
  2. OCCUVITE [Concomitant]
  3. EMERGENCIES [Concomitant]
  4. OCUTABS [Concomitant]
  5. BELL MASTER HERABLIST HEALTH BLOOD PRESSURE #26 [Concomitant]

REACTIONS (1)
  - Swelling face [None]
